FAERS Safety Report 14532099 (Version 3)
Quarter: 2018Q2

REPORT INFORMATION
  Report Type: Spontaneous
  Country: HU (occurrence: HU)
  Receive Date: 20180214
  Receipt Date: 20180405
  Transmission Date: 20180711
  Serious: Yes (Life-Threatening, Hospitalization, Other)
  Sender: FDA-Public Use
  Company Number: PHHY2018HU024187

PATIENT
  Age: 39 Year
  Sex: Female
  Weight: 65 kg

DRUGS (14)
  1. DAUNOBLASTINA [Suspect]
     Active Substance: DAUNORUBICIN
     Indication: ACUTE MYELOID LEUKAEMIA
     Dosage: 110 MG, AS INDUCTION THERAPY 7+3, FOR 3 DAYS
     Route: 042
     Dates: start: 201203
  2. DOXORUBICIN HYDROCHLORIDE. [Suspect]
     Active Substance: DOXORUBICIN HYDROCHLORIDE
     Indication: ACUTE MYELOID LEUKAEMIA
     Dosage: 90 MG, ON DAYS SECOND AND FOURTH
     Route: 042
     Dates: start: 201204
  3. FLUDARA [Suspect]
     Active Substance: FLUDARABINE PHOSPHATE
     Indication: ACUTE MYELOID LEUKAEMIA
     Dosage: 50 MG ON DAYS OF FIRST TO FIFTH
     Route: 042
  4. ALEXAN (CYTARABINE) [Suspect]
     Active Substance: CYTARABINE
     Indication: ACUTE MYELOID LEUKAEMIA
     Dosage: 190 MG, QD (AS INDUCTION THERAPY 7+3, RECEIVED FOR 7 DAYS ) (24 HR INFUSION)
     Route: 042
     Dates: start: 201203
  5. ALEXAN (CYTARABINE) [Suspect]
     Active Substance: CYTARABINE
     Dosage: 5.4 G, BID (ON DAYS 1 3 AND 5 AS CONSOLIDATION)
     Route: 042
     Dates: start: 201205
  6. FLUDARABINE [Suspect]
     Active Substance: FLUDARABINE PHOSPHATE
     Indication: PRODUCT USED FOR UNKNOWN INDICATION
     Dosage: 50 MG, UNK
     Route: 065
     Dates: start: 201401
  7. ALEXAN (CYTARABINE) [Suspect]
     Active Substance: CYTARABINE
     Dosage: 5.5 G, BID
     Route: 042
     Dates: start: 201204
  8. AMOXICILLIN. [Suspect]
     Active Substance: AMOXICILLIN
     Indication: PRODUCT USED FOR UNKNOWN INDICATION
     Route: 065
  9. ZAVEDOS [Suspect]
     Active Substance: IDARUBICIN
     Indication: ACUTE MYELOID LEUKAEMIA
     Dosage: 14 MG, ON DAYS 1-3
     Route: 042
     Dates: start: 201401
  10. ALEXAN (CYTARABINE) [Suspect]
     Active Substance: CYTARABINE
     Dosage: 3.4 G, BID (ON DAYS 1-5)
     Route: 042
     Dates: start: 201401
  11. SUMETROLIM [Concomitant]
     Active Substance: SULFAMETHOXAZOLE\TRIMETHOPRIM
     Indication: PRODUCT USED FOR UNKNOWN INDICATION
     Route: 065
  12. ACICLOVIR [Concomitant]
     Active Substance: ACYCLOVIR
     Indication: PRODUCT USED FOR UNKNOWN INDICATION
     Route: 065
  13. G-CSF [Suspect]
     Active Substance: GRANULOCYTE COLONY-STIMULATING FACTOR NOS
     Indication: ACUTE MYELOID LEUKAEMIA
     Dosage: UNK
     Route: 065
     Dates: start: 201401
  14. MILURIT [Concomitant]
     Active Substance: ALLOPURINOL
     Indication: PRODUCT USED FOR UNKNOWN INDICATION
     Route: 065

REACTIONS (8)
  - Acute myeloid leukaemia recurrent [Unknown]
  - Febrile neutropenia [Recovered/Resolved]
  - Respiratory failure [Recovered/Resolved]
  - Pyrexia [Unknown]
  - Neoplasm recurrence [Unknown]
  - Bronchopulmonary aspergillosis [Recovered/Resolved]
  - Aspergillus infection [Unknown]
  - Tumour lysis syndrome [Recovered/Resolved]

NARRATIVE: CASE EVENT DATE: 20120206
